FAERS Safety Report 4634234-8 (Version None)
Quarter: 2005Q2

REPORT INFORMATION
  Report Type: 
  Country: None (occurrence: None)
  Receive Date: 20050413
  Receipt Date: 20021128
  Transmission Date: 20051028
  Serious: Yes (Hospitalization, Other)
  Sender: FDA-Public Use
  Company Number: PHBS2002JP14751

PATIENT
  Age: 58 Year
  Sex: Male
  Weight: 44 kg

DRUGS (1)
  1. GLEEVEC [Suspect]
     Indication: CHRONIC MYELOID LEUKAEMIA
     Dosage: 400 MG, QD
     Route: 048
     Dates: start: 20021025, end: 20021101

REACTIONS (8)
  - ANXIETY [None]
  - CEREBRAL INFARCTION [None]
  - CONCOMITANT DISEASE PROGRESSION [None]
  - DEPRESSION [None]
  - HEMIPARESIS [None]
  - HYPERTENSION [None]
  - PARALYSIS [None]
  - SUICIDE ATTEMPT [None]
